FAERS Safety Report 10173187 (Version 1)
Quarter: 2014Q2

REPORT INFORMATION
  Report Type: Spontaneous
  Country: US (occurrence: None)
  Receive Date: 20140424
  Receipt Date: 20140424
  Transmission Date: 20141212
  Serious: Yes (Life-Threatening)
  Sender: FDA-Public Use
  Company Number: FK201301521

PATIENT
  Age: 44 Year
  Sex: Male
  Weight: 92.53 kg

DRUGS (4)
  1. HEPARIN SODIUM INJECTION, USP (HEPARIN SODIUM) (HEPARIN SODIUM) [Suspect]
     Indication: CATHETERISATION CARDIAC
     Dosage: 5200 USP UNITS
     Dates: start: 20130501
  2. ATENOLOL (ATENOLOL) [Concomitant]
  3. FENOFIBRATE (FENOFIBRATE) [Concomitant]
  4. MULTIVITAMIN [Concomitant]

REACTIONS (1)
  - Coronary artery thrombosis [None]
